FAERS Safety Report 10691020 (Version 6)
Quarter: 2015Q3

REPORT INFORMATION
  Report Type: Spontaneous
  Country: US (occurrence: US)
  Receive Date: 20150105
  Receipt Date: 20150925
  Transmission Date: 20151125
  Serious: Yes (Other)
  Sender: FDA-Public Use
  Company Number: US-PFIZER INC-2014347627

PATIENT
  Age: 77 Year
  Sex: Female

DRUGS (3)
  1. LYRICA [Suspect]
     Active Substance: PREGABALIN
     Indication: ARTHRITIS
     Dosage: 100 MG, 4X/DAY
     Route: 048
  2. LYRICA [Suspect]
     Active Substance: PREGABALIN
     Indication: PAIN IN EXTREMITY
  3. LYRICA [Suspect]
     Active Substance: PREGABALIN
     Indication: RADICULOPATHY
     Dosage: 100 MG, 3X/DAY
     Route: 048

REACTIONS (6)
  - Product use issue [Unknown]
  - Depressed mood [Unknown]
  - Radiculopathy [Unknown]
  - Discomfort [Unknown]
  - Pain [Unknown]
  - Disease progression [Unknown]
